FAERS Safety Report 5979542-3 (Version None)
Quarter: 2008Q4

REPORT INFORMATION
  Report Type: 
  Country: None (occurrence: None)
  Receive Date: 20081204
  Receipt Date: 20081202
  Transmission Date: 20090506
  Serious: Yes (Hospitalization, Other)
  Sender: FDA-Public Use
  Company Number: JP-B.I. PHARMACEUTICALS,INC./RIDGEFIELD-2008-BP-16633NB

PATIENT
  Sex: Male
  Weight: 57 kg

DRUGS (2)
  1. MICARDIS [Suspect]
     Indication: HYPERTENSION
     Dosage: 20MG
     Route: 048
     Dates: start: 20061016, end: 20080722
  2. NORVASC [Concomitant]
     Indication: HYPERTENSION
     Dosage: 5MG
     Route: 048
     Dates: start: 20031101

REACTIONS (3)
  - DEHYDRATION [None]
  - NASOPHARYNGITIS [None]
  - RENAL IMPAIRMENT [None]
